FAERS Safety Report 15306882 (Version 2)
Quarter: 2018Q3

REPORT INFORMATION
  Report Type: Spontaneous
  Country: US (occurrence: US)
  Receive Date: 20180822
  Receipt Date: 20180822
  Transmission Date: 20181010
  Serious: No
  Sender: FDA-Public Use
  Company Number: ALCN2014US002094

PATIENT
  Age: 75 Year
  Sex: Female
  Weight: 77.98 kg

DRUGS (2)
  1. PILOCARPINE HCL [Suspect]
     Active Substance: PILOCARPINE HYDROCHLORIDE
     Indication: MYDRIASIS
     Dosage: 1 GTT, QD
     Route: 047
     Dates: start: 20140322, end: 20140330
  2. PILOCARPINE HCL [Suspect]
     Active Substance: PILOCARPINE HYDROCHLORIDE
     Dosage: 1 GTT, QD
     Route: 047

REACTIONS (3)
  - Mydriasis [Not Recovered/Not Resolved]
  - Drug ineffective [Not Recovered/Not Resolved]
  - Presbyopia [Not Recovered/Not Resolved]

NARRATIVE: CASE EVENT DATE: 20140322
